FAERS Safety Report 24025446 (Version 3)
Quarter: 2024Q3

REPORT INFORMATION
  Report Type: Report from Study
  Country: CL (occurrence: CL)
  Receive Date: 20240628
  Receipt Date: 20240710
  Transmission Date: 20241016
  Serious: No
  Sender: ROCHE
  Company Number: CL-ROCHE-3433066

PATIENT
  Age: 34 Year
  Sex: Female

DRUGS (15)
  1. PHESGO [Suspect]
     Active Substance: HYALURONIDASE-ZZXF\PERTUZUMAB\TRASTUZUMAB
     Indication: HER2 positive breast cancer
     Dosage: TRASTUZUMAB 600 PERTUZUMAB 1200
     Route: 058
     Dates: start: 20230901
  2. PHESGO [Suspect]
     Active Substance: HYALURONIDASE-ZZXF\PERTUZUMAB\TRASTUZUMAB
     Dosage: DOSE: 600/600 MG
     Route: 058
     Dates: start: 20230922
  3. PHESGO [Suspect]
     Active Substance: HYALURONIDASE-ZZXF\PERTUZUMAB\TRASTUZUMAB
     Dosage: DOSE: 600/600 MG
     Route: 058
     Dates: start: 20231013
  4. CHLORPHENIRAMINE MALEATE [Suspect]
     Active Substance: CHLORPHENIRAMINE MALEATE
     Indication: Product used for unknown indication
     Dosage: DOSE AND FREQUENCY WERE NOT REPORTED
     Route: 065
  5. DOCETAXEL [Concomitant]
     Active Substance: DOCETAXEL\DOCETAXEL ANHYDROUS
     Dates: start: 20230901
  6. CARBOPLATIN [Concomitant]
     Active Substance: CARBOPLATIN
     Dates: start: 20230901
  7. CARBOPLATIN [Concomitant]
     Active Substance: CARBOPLATIN
     Dates: start: 20230922
  8. CARBOPLATIN [Concomitant]
     Active Substance: CARBOPLATIN
     Dates: start: 20230929
  9. CARBOPLATIN [Concomitant]
     Active Substance: CARBOPLATIN
     Dates: start: 20231006
  10. CARBOPLATIN [Concomitant]
     Active Substance: CARBOPLATIN
     Dates: start: 20231013
  11. PACLITAXEL [Concomitant]
     Active Substance: PACLITAXEL
     Dates: start: 20230922
  12. PACLITAXEL [Concomitant]
     Active Substance: PACLITAXEL
     Dates: start: 20230929
  13. PACLITAXEL [Concomitant]
     Active Substance: PACLITAXEL
     Dates: start: 20231006
  14. TAXOL [Concomitant]
     Active Substance: PACLITAXEL
     Dates: start: 20231013
  15. FILGRASTIM [Concomitant]
     Active Substance: FILGRASTIM
     Dosage: DURING 5 DAYS

REACTIONS (9)
  - Fatigue [Recovering/Resolving]
  - Diarrhoea [Recovering/Resolving]
  - Haemorrhage [Recovering/Resolving]
  - Haemorrhoids [Recovering/Resolving]
  - Ill-defined disorder [Recovering/Resolving]
  - Injection site erythema [Unknown]
  - Injection site pain [Recovered/Resolved]
  - Somnolence [Unknown]
  - Constipation [Unknown]

NARRATIVE: CASE EVENT DATE: 20230901
